FAERS Safety Report 25313031 (Version 1)
Quarter: 2025Q2

REPORT INFORMATION
  Report Type: Spontaneous
  Country: CR (occurrence: CR)
  Receive Date: 20250514
  Receipt Date: 20250514
  Transmission Date: 20250717
  Serious: Yes (Other)
  Sender: ABBVIE
  Company Number: CR-ABBOTT-2025A-1398968

PATIENT

DRUGS (1)
  1. EPIVAL [Suspect]
     Active Substance: DIVALPROEX SODIUM
     Indication: Seizure
     Route: 048

REACTIONS (5)
  - Haematotoxicity [Unknown]
  - Neutropenia [Unknown]
  - Gait disturbance [Unknown]
  - Thrombocytopenia [Unknown]
  - Asthenia [Unknown]
